FAERS Safety Report 10884950 (Version 1)
Quarter: 2015Q1

REPORT INFORMATION
  Report Type: Spontaneous
  Country: US (occurrence: None)
  Receive Date: 20150227
  Receipt Date: 20150227
  Transmission Date: 20150721
  Serious: Yes (Other)
  Sender: FDA-Public Use
  Company Number: None

PATIENT
  Age: 37 Year
  Sex: Male
  Weight: 68.04 kg

DRUGS (6)
  1. TRAMADOL [Suspect]
     Active Substance: TRAMADOL
     Indication: SKIN INFECTION
     Dosage: 1 PILL EVERY 4-6 HOURS, AS NEEDED TAKEN BY MOUTH
     Route: 048
     Dates: start: 20150224, end: 20150225
  2. TRAMADOL [Suspect]
     Active Substance: TRAMADOL
     Dosage: 1 PILL EVERY 4-6 HOURS, AS NEEDED TAKEN BY MOUTH
     Route: 048
     Dates: start: 20150224, end: 20150225
  3. IBUPROFEN. [Concomitant]
     Active Substance: IBUPROFEN
  4. ANTIBIOTICS [Concomitant]
     Active Substance: UNSPECIFIED INGREDIENT
  5. CEPHALEXIN. [Concomitant]
     Active Substance: CEPHALEXIN
  6. BACTRIM [Concomitant]
     Active Substance: SULFAMETHOXAZOLE\TRIMETHOPRIM

REACTIONS (7)
  - Fatigue [None]
  - Nausea [None]
  - Vomiting [None]
  - Headache [None]
  - Night sweats [None]
  - Dizziness [None]
  - Insomnia [None]

NARRATIVE: CASE EVENT DATE: 20150225
